FAERS Safety Report 15488322 (Version 2)
Quarter: 2018Q4

REPORT INFORMATION
  Report Type: Spontaneous
  Country: SI (occurrence: SI)
  Receive Date: 20181011
  Receipt Date: 20181025
  Transmission Date: 20190205
  Serious: Yes (Death)
  Sender: FDA-Public Use
  Company Number: SI-ASTRAZENECA-2018SF30124

PATIENT
  Age: 72 Year
  Sex: Male

DRUGS (1)
  1. KVELUX [Suspect]
     Active Substance: QUETIAPINE FUMARATE
     Dosage: 50.0MG UNKNOWN
     Route: 048

REACTIONS (2)
  - Lung neoplasm malignant [Fatal]
  - Hallucination [Fatal]
